FAERS Safety Report 6226497-2 (Version None)
Quarter: 2009Q2

REPORT INFORMATION
  Report Type: 
  Country: None (occurrence: None)
  Receive Date: 20090612
  Receipt Date: 20090603
  Transmission Date: 20091009
  Serious: Yes (Other)
  Sender: FDA-Public Use
  Company Number: JP-PFIZER INC-2009223682

PATIENT
  Age: 62 Year

DRUGS (2)
  1. AMLODIPINE [Suspect]
     Indication: HYPERTENSION
     Route: 048
     Dates: end: 20080901
  2. VALSARTAN [Concomitant]
     Route: 048
     Dates: end: 20080201

REACTIONS (1)
  - ANAEMIA [None]
